FAERS Safety Report 8889825 (Version 1)
Quarter: 2012Q4

REPORT INFORMATION
  Report Type: 
  Country: IL (occurrence: IL)
  Receive Date: 20121107
  Receipt Date: 20121107
  Transmission Date: 20130627
  Serious: No
  Sender: FDA-Public Use
  Company Number: IL-009507513-1210ISR009131

PATIENT
  Sex: Male

DRUGS (2)
  1. ELOCOM [Suspect]
  2. TRIDERM [Suspect]

REACTIONS (2)
  - Drug administration error [Unknown]
  - Product name confusion [Unknown]
